FAERS Safety Report 25029886 (Version 7)
Quarter: 2025Q3

REPORT INFORMATION
  Report Type: Spontaneous
  Country: CA (occurrence: CA)
  Receive Date: 20250303
  Receipt Date: 20250703
  Transmission Date: 20251020
  Serious: Yes (Hospitalization, Other)
  Sender: AUROBINDO
  Company Number: CA-AUROBINDO-AUR-APL-2025-010333

PATIENT
  Age: 42 Year
  Sex: Female

DRUGS (7)
  1. CLINDAMYCIN HYDROCHLORIDE [Suspect]
     Active Substance: CLINDAMYCIN HYDROCHLORIDE
     Indication: Impetigo
     Dosage: 300 MILLIGRAM, FOUR TIMES/DAY
     Route: 065
     Dates: start: 20250106, end: 20250612
  2. PREDNISONE [Concomitant]
     Active Substance: PREDNISONE
     Indication: Product used for unknown indication
     Route: 065
     Dates: start: 20250112
  3. PREDNISONE [Concomitant]
     Active Substance: PREDNISONE
     Route: 065
     Dates: start: 20250113
  4. PREDNISONE [Concomitant]
     Active Substance: PREDNISONE
     Route: 065
     Dates: start: 20250120, end: 20250305
  5. MUPIROCIN [Concomitant]
     Active Substance: MUPIROCIN
     Indication: Impetigo
     Route: 065
     Dates: start: 20250103
  6. AZITHROMYCIN [Concomitant]
     Active Substance: AZITHROMYCIN
     Indication: Impetigo
     Route: 065
  7. BILASTINE [Concomitant]
     Active Substance: BILASTINE
     Indication: Impetigo
     Route: 065

REACTIONS (14)
  - Stevens-Johnson syndrome [Unknown]
  - Haematochezia [Unknown]
  - Internal haemorrhage [Unknown]
  - Atrial fibrillation [Unknown]
  - Seizure [Unknown]
  - Hypersensitivity [Unknown]
  - Mouth ulceration [Unknown]
  - Rash [Unknown]
  - Visual impairment [Unknown]
  - Hypoacusis [Unknown]
  - Ear pain [Unknown]
  - Feeling abnormal [Unknown]
  - Sensitive skin [Unknown]
  - Emotional disorder [Unknown]

NARRATIVE: CASE EVENT DATE: 20250101
